FAERS Safety Report 14376062 (Version 2)
Quarter: 2018Q3

REPORT INFORMATION
  Report Type: Spontaneous
  Country: US (occurrence: US)
  Receive Date: 20180111
  Receipt Date: 20180702
  Transmission Date: 20181010
  Serious: No
  Sender: FDA-Public Use
  Company Number: US-PFIZER INC-2018006628

PATIENT
  Age: 63 Year
  Sex: Female
  Weight: 134.24 kg

DRUGS (13)
  1. DOCETAXEL. [Suspect]
     Active Substance: DOCETAXEL
     Dosage: UNK
     Dates: start: 201012, end: 201105
  2. TAXOTERE [Suspect]
     Active Substance: DOCETAXEL
     Dosage: 25 MG/M2, CYCLIC (4 CYCLES, DELAYED)
     Dates: start: 20120206, end: 20120806
  3. PLAVIX [Concomitant]
     Active Substance: CLOPIDOGREL BISULFATE
     Dosage: UNK
     Dates: start: 20040101
  4. AVAPRO [Concomitant]
     Active Substance: IRBESARTAN
     Dosage: UNK
     Dates: start: 20040101
  5. ADRIAMYCIN [Concomitant]
     Active Substance: DOXORUBICIN HYDROCHLORIDE
     Dosage: UNK
  6. CYTOXAN [Concomitant]
     Active Substance: CYCLOPHOSPHAMIDE
     Dosage: UNK
  7. DOCETAXEL. [Suspect]
     Active Substance: DOCETAXEL
     Dosage: 25 MG/M2, CYCLIC (4 CYCLES, DELAYED)
     Dates: start: 20120206, end: 20120806
  8. TAXOTERE [Suspect]
     Active Substance: DOCETAXEL
     Dosage: UNK
     Dates: start: 201012, end: 201105
  9. AMILORIDE HCL W/ HYDROCHLOROTHIAZIDE [Concomitant]
     Active Substance: AMILORIDE HYDROCHLORIDE\HYDROCHLOROTHIAZIDE
     Dosage: UNK
     Dates: start: 20040101
  10. NEOSAR [Concomitant]
     Active Substance: CYCLOPHOSPHAMIDE
     Dosage: UNK
  11. DOXIL [Concomitant]
     Active Substance: DOXORUBICIN HYDROCHLORIDE
     Dosage: UNK
  12. DOCETAXEL. [Suspect]
     Active Substance: DOCETAXEL
     Dosage: UNK
     Dates: start: 201012, end: 201105
  13. DOCETAXEL. [Suspect]
     Active Substance: DOCETAXEL
     Dosage: 25 MG/M2, CYCLIC (4 CYCLES, DELAYED)
     Dates: start: 20120206, end: 20120806

REACTIONS (5)
  - Alopecia [Unknown]
  - Hair colour changes [Unknown]
  - Hair disorder [Unknown]
  - Hair texture abnormal [Unknown]
  - Madarosis [Unknown]

NARRATIVE: CASE EVENT DATE: 20120514
